FAERS Safety Report 11895404 (Version 4)
Quarter: 2016Q1

REPORT INFORMATION
  Report Type: Report from Study
  Country: US (occurrence: US)
  Receive Date: 20160107
  Receipt Date: 20160128
  Transmission Date: 20160526
  Serious: Yes (Other)
  Sender: FDA-Public Use
  Company Number: US-ABBVIE-15K-163-1529798-00

PATIENT
  Sex: Male

DRUGS (1)
  1. HUMIRA [Suspect]
     Active Substance: ADALIMUMAB
     Indication: PSORIATIC ARTHROPATHY
     Route: 058
     Dates: start: 20151018

REACTIONS (11)
  - Arthralgia [Unknown]
  - Foot operation [Unknown]
  - Headache [Unknown]
  - Ligament rupture [Unknown]
  - Joint swelling [Unknown]
  - Gait disturbance [Unknown]
  - Procedural pain [Unknown]
  - Activities of daily living impaired [Unknown]
  - Rhinorrhoea [Unknown]
  - Depression [Unknown]
  - Hyperhidrosis [Unknown]

NARRATIVE: CASE EVENT DATE: 2015
